FAERS Safety Report 20782069 (Version 3)
Quarter: 2022Q4

REPORT INFORMATION
  Report Type: Report from Study
  Country: US (occurrence: US)
  Receive Date: 20220504
  Receipt Date: 20221228
  Transmission Date: 20230113
  Serious: Yes (Hospitalization)
  Sender: FDA-Public Use
  Company Number: US-002147023-NVSC2022US099646

PATIENT
  Sex: Male

DRUGS (2)
  1. TREPROSTINIL [Suspect]
     Active Substance: TREPROSTINIL
     Indication: Pulmonary arterial hypertension
     Dosage: 74 NG/KG/MIN, CONT (STRENGTH: 1MG/ML)
     Route: 042
     Dates: start: 202204
  2. TREPROSTINIL [Suspect]
     Active Substance: TREPROSTINIL
     Dosage: 36 NG/KG/MIN CONT (STRENGTH: 5MG/ML)
     Route: 042
     Dates: start: 20220418

REACTIONS (1)
  - Vascular device infection [Recovered/Resolved]
